FAERS Safety Report 5455954-1 (Version None)
Quarter: 2007Q3

REPORT INFORMATION
  Report Type: 
  Country: None (occurrence: None)
  Receive Date: 20070914
  Receipt Date: 20070907
  Transmission Date: 20080115
  Serious: Yes (Death, Hospitalization, Other)
  Sender: FDA-Public Use
  Company Number: 237150K07USA

PATIENT
  Age: 43 Year
  Sex: Female

DRUGS (5)
  1. REBIF [Suspect]
     Indication: MULTIPLE SCLEROSIS
     Dosage: SEE IMAGE
     Route: 058
     Dates: start: 20020801, end: 20040801
  2. REBIF [Suspect]
     Indication: MULTIPLE SCLEROSIS
     Dosage: SEE IMAGE
     Route: 058
     Dates: start: 20070614, end: 20070701
  3. REBIF [Suspect]
     Indication: MULTIPLE SCLEROSIS
     Dosage: SEE IMAGE
     Route: 058
     Dates: start: 20070701, end: 20070816
  4. FENTANYL [Concomitant]
  5. BACLOFEN [Concomitant]

REACTIONS (8)
  - CHROMATURIA [None]
  - CONSTIPATION [None]
  - NAUSEA [None]
  - OVERDOSE [None]
  - PAIN [None]
  - RESPIRATORY ARREST [None]
  - SOMNOLENCE [None]
  - STOMACH DISCOMFORT [None]
